FAERS Safety Report 7476847-4 (Version None)
Quarter: 2011Q2

REPORT INFORMATION
  Report Type: 
  Country: None (occurrence: None)
  Receive Date: 20110512
  Receipt Date: 20110502
  Transmission Date: 20111010
  Serious: Yes (Death, Hospitalization, Other)
  Sender: FDA-Public Use
  Company Number: US-ELI_LILLY_AND_COMPANY-US201105000981

PATIENT
  Age: 62 Year
  Sex: Male

DRUGS (2)
  1. CARBOPLATIN [Concomitant]
     Dosage: UNK, DAY 1 OF 21DAY CYCLE
  2. GEMCITABINE HYDROCHLORIDE [Suspect]
     Indication: TRANSITIONAL CELL CARCINOMA
     Dosage: 800 MG/M2, ON DAY 1 AND 8 OF 21DAY CYCLE

REACTIONS (7)
  - OEDEMA PERIPHERAL [None]
  - PLEURAL EFFUSION [None]
  - VOMITING [None]
  - LUNG INFILTRATION [None]
  - THROMBOTIC MICROANGIOPATHY [None]
  - NAUSEA [None]
  - DYSPNOEA [None]
